FAERS Safety Report 4846457-3 (Version None)
Quarter: 2005Q4

REPORT INFORMATION
  Report Type: 
  Country: None (occurrence: None)
  Receive Date: 20051202
  Receipt Date: 20051121
  Transmission Date: 20060501
  Serious: Yes (Disabling, Other)
  Sender: FDA-Public Use
  Company Number: 2005159028

PATIENT
  Age: 69 Year
  Sex: Male
  Weight: 97.0698 kg

DRUGS (6)
  1. VIAGRA [Suspect]
     Indication: ILL-DEFINED DISORDER
  2. RANITIDINE HCL [Concomitant]
  3. CYANOCOBALAMIN [Concomitant]
  4. FOLIC ACID [Concomitant]
  5. GATIFLOXACIN [Concomitant]
  6. PYRIDOXINE (PYRIDOXINE) [Concomitant]

REACTIONS (3)
  - BLINDNESS [None]
  - HAEMATURIA [None]
  - RETINAL ARTERY OCCLUSION [None]
